FAERS Safety Report 4583913-X (Version None)
Quarter: 2005Q1

REPORT INFORMATION
  Report Type: 
  Country: None (occurrence: None)
  Receive Date: 20050211
  Receipt Date: 20050201
  Transmission Date: 20050727
  Serious: Yes (Other)
  Sender: FDA-Public Use
  Company Number: HQWYE018102FEB05

PATIENT
  Age: 57 Year
  Sex: Male

DRUGS (7)
  1. CORDARONE [Suspect]
     Indication: ATRIAL FIBRILLATION
     Dosage: INTRAVENOUS DRIP
     Route: 041
     Dates: start: 20041210, end: 20041221
  2. PROPOFOL [Suspect]
     Dosage: INTRAVENOUS DRIP
     Route: 041
     Dates: start: 20041206, end: 20041217
  3. SORTIS ^GOEDECKE^ (ATORVASTATIN CALCIUM, ) [Suspect]
     Indication: HYPERLIPIDAEMIA
     Dosage: 40 MG 1X PER 1 DAY, ORAL
     Route: 048
     Dates: end: 20041220
  4. FENTANYL [Concomitant]
  5. ROCEPHIN [Concomitant]
  6. SOLU-CORTEF [Concomitant]
  7. FLOXAPEN (FLUCLOXACILLIN SODIUM) [Concomitant]

REACTIONS (3)
  - HAEMODIALYSIS [None]
  - RENAL FAILURE ACUTE [None]
  - RHABDOMYOLYSIS [None]
